FAERS Safety Report 7273220-9 (Version None)
Quarter: 2011Q1

REPORT INFORMATION
  Report Type: 
  Country: None (occurrence: None)
  Receive Date: 20110126
  Receipt Date: 20110112
  Transmission Date: 20110831
  Serious: Yes (Hospitalization)
  Sender: FDA-Public Use
  Company Number: 1000018240

PATIENT
  Age: 72 Year
  Sex: Female

DRUGS (10)
  1. HALDOL [Suspect]
     Indication: BIPOLAR DISORDER
     Dosage: 4 MG (2 MG, 2 IN 1 D) ORAL
     Route: 048
     Dates: start: 20040530, end: 20040601
  2. COSAAR PLUS (LOSARTAN, HYDROCHLOROTHIAZIDE) (TABLETS) [Concomitant]
  3. CITALOPRAM HYDROBROMIDE [Suspect]
     Dosage: 20 MG (20 MG, 1 IN 1 D), ORAL
     Route: 048
  4. DIGOXIN [Concomitant]
  5. LASIX [Concomitant]
  6. KCL-EFFERETTES (POTASSIUM CHLORIDE) (TABLETS) [Concomitant]
  7. MARCOUMAR (PHENPROCOUMON) (TABLETS) [Concomitant]
  8. DIPIPEROL (PIPAMPERONE HYDROCHLORIDE) (TABLETS) [Suspect]
     Dosage: 40 MG (40 MG, 1 IN 1 D), ORAL
     Route: 048
  9. LEPONEX (CLOZAPINE) [Suspect]
     Indication: BIPOLAR DISORDER
     Dosage: 25 MG (12.5 MG, 2 IN 1 D) ORAL
     Route: 048
     Dates: start: 20040602, end: 20050101
  10. LITHIOFOR (LITHIUM SULFATE) (TABLETS) [Suspect]
     Indication: BIPOLAR DISORDER
     Dosage: 660 MG (330 MG, 2 IN 1 D), ORAL
     Route: 048
     Dates: start: 20050101

REACTIONS (4)
  - EXTRAPYRAMIDAL DISORDER [None]
  - TREMOR [None]
  - CHILLS [None]
  - AKINESIA [None]
